FAERS Safety Report 8053595-3 (Version None)
Quarter: 2012Q1

REPORT INFORMATION
  Report Type: 
  Country: None (occurrence: None)
  Receive Date: 20120118
  Receipt Date: 20120112
  Transmission Date: 20120608
  Serious: Yes (Hospitalization, Other)
  Sender: FDA-Public Use
  Company Number: US-MERCK-1010USA01165

PATIENT
  Age: 76 Year
  Sex: Female
  Weight: 73 kg

DRUGS (4)
  1. FOSAMAX [Suspect]
     Indication: OSTEOPOROSIS
     Route: 048
     Dates: start: 20031125, end: 20100801
  2. ONE-A-DAY ESSENTIAL VITAMINS [Concomitant]
     Route: 065
     Dates: start: 20050101
  3. FOSAMAX [Suspect]
     Route: 048
     Dates: start: 19981201
  4. ALENDRONATE SODIUM [Suspect]
     Route: 065
     Dates: start: 20080201, end: 20100101

REACTIONS (27)
  - FRACTURE NONUNION [None]
  - HEAD INJURY [None]
  - DEVICE BREAKAGE [None]
  - DYSLIPIDAEMIA [None]
  - ABDOMINAL PAIN [None]
  - VOMITING [None]
  - RIB FRACTURE [None]
  - OSTEITIS [None]
  - FEMUR FRACTURE [None]
  - NEOPLASM [None]
  - HEPATIC CYST [None]
  - LOW TURNOVER OSTEOPATHY [None]
  - MUSCULAR WEAKNESS [None]
  - IMPAIRED HEALING [None]
  - DIZZINESS [None]
  - FALL [None]
  - PAIN IN EXTREMITY [None]
  - NAUSEA [None]
  - OSTEOARTHRITIS [None]
  - ATROPHY [None]
  - ARTHROPATHY [None]
  - AORTIC ARTERIOSCLEROSIS [None]
  - GASTROINTESTINAL DISORDER [None]
  - CARDIAC FAILURE CONGESTIVE [None]
  - PERIPHERAL VASCULAR DISORDER [None]
  - PAIN IN JAW [None]
  - DYSPNOEA [None]
